FAERS Safety Report 6139509-1 (Version None)
Quarter: 2009Q1

REPORT INFORMATION
  Report Type: 
  Country: None (occurrence: None)
  Receive Date: 20090327
  Receipt Date: 20090123
  Transmission Date: 20090719
  Serious: Yes (Other)
  Sender: FDA-Public Use
  Company Number: 8041582

PATIENT
  Age: 25 Year
  Sex: Female

DRUGS (3)
  1. XYZAL [Suspect]
     Indication: URTICARIA CHRONIC
     Dosage: 5 MG /D PO
     Route: 048
  2. BIRTH CONTROL PILL [Concomitant]
  3. ALLEGRA [Concomitant]

REACTIONS (1)
  - CONVULSION [None]
